FAERS Safety Report 12157489 (Version 1)
Quarter: 2016Q1

REPORT INFORMATION
  Report Type: Spontaneous
  Country: JP (occurrence: JP)
  Receive Date: 20160308
  Receipt Date: 20160308
  Transmission Date: 20160526
  Serious: Yes (Death, Hospitalization)
  Sender: FDA-Public Use
  Company Number: JP-ACTELION-A-CH2016-132440

PATIENT
  Age: 85 Year
  Sex: Female

DRUGS (8)
  1. SILDENAFIL CITRATE. [Concomitant]
     Active Substance: SILDENAFIL CITRATE
  2. BERAPROST SODIUM [Concomitant]
     Active Substance: BERAPROST SODIUM
  3. TOLVAPTAN [Concomitant]
     Active Substance: TOLVAPTAN
  4. OXYGEN. [Concomitant]
     Active Substance: OXYGEN
  5. FUROSEMIDE. [Concomitant]
     Active Substance: FUROSEMIDE
  6. EPOPROSTENOL ACT [Suspect]
     Active Substance: EPOPROSTENOL
     Indication: PULMONARY ARTERIAL HYPERTENSION
     Dosage: 2 NG/KG, PER MIN
     Route: 042
     Dates: start: 20151216, end: 20160225
  7. WARFARIN POTASSIUM [Concomitant]
     Active Substance: WARFARIN POTASSIUM
  8. AMLODIPINE BESILATE [Concomitant]
     Active Substance: AMLODIPINE BESYLATE

REACTIONS (2)
  - Cardiac failure [Fatal]
  - Loss of consciousness [Fatal]
